FAERS Safety Report 21234190 (Version 8)
Quarter: 2023Q4

REPORT INFORMATION
  Report Type: Report from Study
  Country: US (occurrence: US)
  Receive Date: 20220819
  Receipt Date: 20231030
  Transmission Date: 20240109
  Serious: Yes (Other)
  Sender: FDA-Public Use
  Company Number: US-ABBVIE-22K-163-4442826-00

PATIENT
  Age: 68 Year
  Sex: Female
  Weight: 64.41 kg

DRUGS (16)
  1. SKYRIZI [Suspect]
     Active Substance: RISANKIZUMAB-RZAA
     Indication: Psoriasis
     Dosage: STRENGTH: 150 MILLIGRAM
     Route: 058
     Dates: start: 20211027, end: 20211027
  2. SKYRIZI [Suspect]
     Active Substance: RISANKIZUMAB-RZAA
     Dosage: STRENGTH: 150 MILLIGRAM
     Route: 058
     Dates: start: 20211124, end: 20211124
  3. SKYRIZI [Suspect]
     Active Substance: RISANKIZUMAB-RZAA
     Dosage: STRENGTH: 150 MILLIGRAM
     Route: 058
     Dates: start: 20220506, end: 20220506
  4. SKYRIZI [Suspect]
     Active Substance: RISANKIZUMAB-RZAA
     Dosage: STRENGTH: 150 MILLIGRAM
     Route: 058
     Dates: start: 20230529, end: 20230529
  5. SKYRIZI [Suspect]
     Active Substance: RISANKIZUMAB-RZAA
     Route: 058
     Dates: start: 20230305, end: 20230305
  6. SKYRIZI [Suspect]
     Active Substance: RISANKIZUMAB-RZAA
     Route: 058
     Dates: start: 20221210, end: 20221210
  7. SKYRIZI [Suspect]
     Active Substance: RISANKIZUMAB-RZAA
     Route: 058
     Dates: start: 20230826
  8. SKYRIZI [Suspect]
     Active Substance: RISANKIZUMAB-RZAA
     Route: 058
     Dates: start: 20220918, end: 20220918
  9. SKYRIZI [Suspect]
     Active Substance: RISANKIZUMAB-RZAA
     Route: 058
     Dates: start: 20220211, end: 20220211
  10. MODERNA COVID-19 VACCINE [Concomitant]
     Active Substance: ELASOMERAN
     Indication: COVID-19 immunisation
     Dosage: TIME INTERVAL: TOTAL: FIRST DOSE?ONE IN ONCE
     Route: 030
     Dates: start: 20210223, end: 20210223
  11. MODERNA COVID-19 VACCINE [Concomitant]
     Active Substance: ELASOMERAN
     Indication: COVID-19 immunisation
     Dosage: TIME INTERVAL: TOTAL: SECOND DOSE?1 IN ONCE
     Route: 030
     Dates: start: 20210329, end: 20210329
  12. PREMARIN [Concomitant]
     Active Substance: ESTROGENS, CONJUGATED
     Indication: Hormone therapy
  13. Vitamin D3 Ol [Concomitant]
     Indication: Vitamin supplementation
     Dosage: 200 MILLIGRAM
  14. PROGESTERONE DCI [Concomitant]
     Indication: Hormone therapy
     Dosage: 100 MILLIGRAM AT NIGHT
  15. CALCIUM [Concomitant]
     Active Substance: CALCIUM
     Indication: Mineral supplementation
  16. LOSARTAN POTASSIUM [Concomitant]
     Active Substance: LOSARTAN POTASSIUM
     Indication: Blood pressure measurement
     Dosage: 25 MILLIGRAM

REACTIONS (10)
  - Tendon rupture [Recovering/Resolving]
  - Nail disorder [Recovering/Resolving]
  - Injection site erythema [Unknown]
  - Headache [Unknown]
  - Fatigue [Unknown]
  - Alopecia [Recovering/Resolving]
  - Psoriasis [Recovering/Resolving]
  - Fall [Recovered/Resolved with Sequelae]
  - Arthralgia [Recovering/Resolving]
  - Arthritis [Unknown]

NARRATIVE: CASE EVENT DATE: 20220401
